FAERS Safety Report 8862798 (Version 15)
Quarter: 2015Q4

REPORT INFORMATION
  Report Type: Spontaneous
  Country: US (occurrence: US)
  Receive Date: 20121026
  Receipt Date: 20151130
  Transmission Date: 20160305
  Serious: Yes (Life-Threatening, Hospitalization, Other)
  Sender: FDA-Public Use
  Company Number: US-JNJFOC-20121012234

PATIENT
  Age: 35 Year
  Sex: Female
  Weight: 71.3 kg

DRUGS (25)
  1. COUMADIN [Suspect]
     Active Substance: WARFARIN SODIUM
     Indication: ANTICOAGULANT THERAPY
     Dosage: EVERY ALTERNATE DAY
     Route: 048
     Dates: end: 20120102
  2. DIAZEPAM. [Concomitant]
     Active Substance: DIAZEPAM
     Indication: PRODUCT USED FOR UNKNOWN INDICATION
     Route: 065
  3. TYLENOL EXTRA STRENGTH [Suspect]
     Active Substance: ACETAMINOPHEN
     Indication: ABDOMINAL PAIN
     Route: 048
     Dates: start: 20120309
  4. TRAZODONE HYDROCHLORIDE. [Concomitant]
     Active Substance: TRAZODONE HYDROCHLORIDE
     Indication: PAIN
     Dosage: AS NECESSARY DURING HOURS OF SLEEP
     Route: 048
  5. TYLENOL EXTRA STRENGTH [Suspect]
     Active Substance: ACETAMINOPHEN
     Indication: ABDOMINAL PAIN
     Dosage: 2 DOSES ONCE EVERY 4 TO 6 HOURS AND SHE HAD ALMOST HALF OF THE BOTTLE.
     Route: 048
     Dates: start: 20120103
  6. TYLENOL EXTRA STRENGTH [Suspect]
     Active Substance: ACETAMINOPHEN
     Indication: PRODUCT USED FOR UNKNOWN INDICATION
     Dosage: 2 DOSES ONCE EVERY 4 TO 6 HOURS AND SHE HAD ALMOST HALF OF THE BOTTLE.
     Route: 048
     Dates: start: 20120103
  7. ALCOHOL. [Suspect]
     Active Substance: ALCOHOL
     Indication: PRODUCT USED FOR UNKNOWN INDICATION
     Route: 065
  8. COUMADIN [Suspect]
     Active Substance: WARFARIN SODIUM
     Indication: ANTICOAGULANT THERAPY
     Route: 048
     Dates: start: 20100611
  9. TRAMADOL HYDEROCHLORIDE [Concomitant]
     Indication: MIGRAINE
     Route: 048
     Dates: start: 20120303
  10. LITHIUM. [Concomitant]
     Active Substance: LITHIUM
     Indication: PRODUCT USED FOR UNKNOWN INDICATION
     Route: 065
  11. COUMADIN [Suspect]
     Active Substance: WARFARIN SODIUM
     Indication: ANTICOAGULANT THERAPY
     Dosage: EVERY ALTERNATE DAY
     Route: 048
  12. COUMADIN [Suspect]
     Active Substance: WARFARIN SODIUM
     Indication: ANTICOAGULANT THERAPY
     Dosage: ONGOING TILL 15-JAN-2015
     Route: 048
  13. SYMBICORT [Concomitant]
     Active Substance: BUDESONIDE\FORMOTEROL FUMARATE DIHYDRATE
     Indication: HYPERSENSITIVITY
     Route: 055
  14. TYLENOL EXTRA STRENGTH [Suspect]
     Active Substance: ACETAMINOPHEN
     Indication: PYREXIA
     Route: 048
     Dates: start: 20120309
  15. TYLENOL EXTRA STRENGTH [Suspect]
     Active Substance: ACETAMINOPHEN
     Indication: GASTROENTERITIS VIRAL
     Dosage: 2 DOSES ONCE EVERY 4 TO 6 HOURS AND SHE HAD ALMOST HALF OF THE BOTTLE.
     Route: 048
     Dates: start: 20120103
  16. DEPAKOTE [Concomitant]
     Active Substance: DIVALPROEX SODIUM
     Indication: PRODUCT USED FOR UNKNOWN INDICATION
     Route: 065
  17. TYLENOL EXTRA STRENGTH [Suspect]
     Active Substance: ACETAMINOPHEN
     Indication: PRODUCT USED FOR UNKNOWN INDICATION
     Route: 048
     Dates: start: 20120309
  18. AMOXICILLIN. [Concomitant]
     Active Substance: AMOXICILLIN
     Route: 065
  19. TYLENOL EXTRA STRENGTH [Suspect]
     Active Substance: ACETAMINOPHEN
     Indication: PYREXIA
     Dosage: 2 DOSES ONCE EVERY 4 TO 6 HOURS AND SHE HAD ALMOST HALF OF THE BOTTLE.
     Route: 048
     Dates: start: 20120103
  20. TYLENOL 8 HR [Suspect]
     Active Substance: ACETAMINOPHEN
     Indication: GASTROENTERITIS
     Dosage: HALF A BOTTLE IN COUPLE OF DAYS
     Route: 065
  21. ALPRAZOLAM. [Concomitant]
     Active Substance: ALPRAZOLAM
     Indication: ANXIETY
     Route: 048
  22. TYLENOL EXTRA STRENGTH [Suspect]
     Active Substance: ACETAMINOPHEN
     Indication: GASTROENTERITIS VIRAL
     Route: 048
     Dates: start: 20120309
  23. TYLENOL 8 HR [Suspect]
     Active Substance: ACETAMINOPHEN
     Route: 065
  24. COUMADIN [Suspect]
     Active Substance: WARFARIN SODIUM
     Indication: ANTICOAGULANT THERAPY
     Route: 048
     Dates: start: 20120312
  25. SYNTHROID [Concomitant]
     Active Substance: LEVOTHYROXINE SODIUM
     Indication: THYROID DISORDER
     Route: 048

REACTIONS (28)
  - Respiratory failure [Recovered/Resolved]
  - Hypotension [Recovered/Resolved]
  - Pneumonia [Recovered/Resolved]
  - Dizziness [None]
  - Hypoacusis [None]
  - Hepatitis B core antibody positive [None]
  - Accidental overdose [Recovered/Resolved]
  - Hypoglycaemia [None]
  - Hepatic encephalopathy [Recovering/Resolving]
  - Muscle tightness [None]
  - Adenovirus test positive [None]
  - Apparent death [None]
  - Leukocytosis [Recovered/Resolved]
  - Epstein-Barr virus antibody positive [None]
  - Middle ear disorder [None]
  - Acute hepatic failure [Recovered/Resolved]
  - Coagulopathy [Recovering/Resolving]
  - Toxicity to various agents [None]
  - Bronchitis [None]
  - Hepatitis A antibody positive [None]
  - Transaminases increased [Recovered/Resolved]
  - Amnesia [None]
  - Thrombocytopenia [Recovered/Resolved]
  - Tachypnoea [Recovered/Resolved]
  - Oedema peripheral [None]
  - Gastrointestinal haemorrhage [None]
  - Hepatitis B surface antibody positive [None]
  - Parvovirus B19 test positive [None]

NARRATIVE: CASE EVENT DATE: 201201
